FAERS Safety Report 8504411-4 (Version None)
Quarter: 2012Q3

REPORT INFORMATION
  Report Type: 
  Country: None (occurrence: None)
  Receive Date: 20120711
  Receipt Date: 20120703
  Transmission Date: 20120928
  Serious: No
  Sender: FDA-Public Use
  Company Number: US-PFIZER INC-2012126947

PATIENT
  Sex: Female
  Weight: 109 kg

DRUGS (8)
  1. METFORMIN HYDROCHLORIDE [Concomitant]
     Indication: GLUCOSE TOLERANCE IMPAIRED
     Dosage: UNK
     Dates: end: 20120101
  2. ZYVOX [Suspect]
     Indication: STAPHYLOCOCCAL INFECTION
     Dosage: 600 MG, 2X/DAY
     Dates: start: 20120510
  3. CIPROFLOXACIN HYDROCHLORIDE [Concomitant]
     Indication: KNEE ARTHROPLASTY
     Dosage: UNK
     Dates: start: 20120101, end: 20120501
  4. MICARDIS HCT [Concomitant]
     Indication: BLOOD PRESSURE ABNORMAL
     Dosage: 80/12.5MG DAILY
  5. CELEBREX [Concomitant]
     Indication: ARTHRITIS
     Dosage: 200 MG, DAILY
  6. HYDROCODONE BITARTRATE + ACETAMINOPHEN [Concomitant]
     Indication: PAIN
     Dosage: 5/325 MG AS NEEDED 1OR 2 TIMES A DAY
     Dates: start: 20120101
  7. ACETYLSALICYLIC ACID [Concomitant]
     Indication: ANTICOAGULANT THERAPY
     Dosage: 3.25 MG, 2X/DAY
     Dates: start: 20120101
  8. CLARINEX [Concomitant]
     Indication: HYPERSENSITIVITY
     Dosage: DAILY

REACTIONS (3)
  - GASTROOESOPHAGEAL REFLUX DISEASE [None]
  - DYSGEUSIA [None]
  - FUNGAL INFECTION [None]
